FAERS Safety Report 10654745 (Version 1)
Quarter: 2014Q4

REPORT INFORMATION
  Report Type: Spontaneous
  Country: JP (occurrence: None)
  Receive Date: 20141212
  Receipt Date: 20141212
  Transmission Date: 20150529
  Serious: Yes (Hospitalization)
  Sender: FDA-Public Use
  Company Number: JP2014JPN029934

PATIENT
  Sex: Male

DRUGS (1)
  1. PAXIL CR [Suspect]
     Active Substance: PAROXETINE HYDROCHLORIDE
     Route: 048

REACTIONS (2)
  - Carbon monoxide poisoning [None]
  - Suicide attempt [None]

NARRATIVE: CASE EVENT DATE: 20141128
